FAERS Safety Report 23641864 (Version 1)
Quarter: 2024Q1

REPORT INFORMATION
  Report Type: Spontaneous
  Country: DK (occurrence: DK)
  Receive Date: 20240318
  Receipt Date: 20240318
  Transmission Date: 20240410
  Serious: Yes (Death, Life-Threatening, Hospitalization)
  Sender: FDA-Public Use
  Company Number: None

PATIENT
  Age: 73 Year
  Sex: Male

DRUGS (7)
  1. METFORMIN [Suspect]
     Active Substance: METFORMIN HYDROCHLORIDE
     Indication: Type 2 diabetes mellitus
     Dosage: STRENGTH: 500 MG
     Route: 048
     Dates: start: 20170516, end: 20240119
  2. JERN C MEDIC [Concomitant]
     Indication: Mineral supplementation
     Route: 065
     Dates: start: 20220524
  3. HJERTEMAGNYL [Concomitant]
     Indication: Anticoagulant therapy
     Route: 065
     Dates: start: 20180523
  4. DAPAGLIFLOZIN [Suspect]
     Active Substance: DAPAGLIFLOZIN
     Indication: Type 2 diabetes mellitus
     Dosage: STRENGTH: 10 MG
     Route: 048
     Dates: start: 20190911, end: 20240120
  5. XARELTO [Concomitant]
     Active Substance: RIVAROXABAN
     Indication: Thrombosis prophylaxis
     Route: 065
     Dates: start: 20220527, end: 202401
  6. OZEMPIC [Suspect]
     Active Substance: SEMAGLUTIDE
     Indication: Type 2 diabetes mellitus
     Dosage: STRENGTH: 0.50 MG
     Route: 058
     Dates: start: 20191120, end: 20240120
  7. GLICLAZIDE [Suspect]
     Active Substance: GLICLAZIDE
     Indication: Type 2 diabetes mellitus
     Route: 048
     Dates: start: 20170516, end: 20240119

REACTIONS (6)
  - Hyperkalaemia [Fatal]
  - Dehydration [Fatal]
  - Nutritional condition abnormal [Fatal]
  - Electrolyte depletion [Fatal]
  - Decreased appetite [Fatal]
  - Renal failure [Fatal]

NARRATIVE: CASE EVENT DATE: 20231101
